FAERS Safety Report 11458197 (Version 5)
Quarter: 2015Q4

REPORT INFORMATION
  Report Type: Spontaneous
  Country: US (occurrence: US)
  Receive Date: 20150904
  Receipt Date: 20151208
  Transmission Date: 20160304
  Serious: Yes (Hospitalization, Other)
  Sender: FDA-Public Use
  Company Number: US-PFIZER INC-2015293138

PATIENT
  Age: 47 Year
  Sex: Female
  Weight: 68 kg

DRUGS (38)
  1. REVATIO [Suspect]
     Active Substance: SILDENAFIL CITRATE
     Dosage: 60 MG, 3X/DAY
     Route: 048
     Dates: start: 201010
  2. CELEBREX [Concomitant]
     Active Substance: CELECOXIB
     Indication: MYALGIA
  3. POTASSIUM [Concomitant]
     Active Substance: POTASSIUM
     Indication: RENAL DISORDER
     Dosage: 20 MEQ, 3X/DAY
     Route: 048
     Dates: start: 2010
  4. LEVOTHYROXINE. [Concomitant]
     Active Substance: LEVOTHYROXINE
     Indication: HYPOTHYROIDISM
     Dosage: 100 MG, 1X/DAY
     Route: 048
     Dates: start: 2012
  5. REVATIO [Suspect]
     Active Substance: SILDENAFIL CITRATE
     Indication: PULMONARY HYPERTENSION
     Dosage: 180 MG, 3X/DAY [20MG 9 TABLETS (180MG)]
     Route: 048
  6. SPIRONOLACTONE. [Concomitant]
     Active Substance: SPIRONOLACTONE
     Indication: CARDIAC FAILURE
     Dosage: 100 MG, 2X/DAY (50MG TABLET BY MOUTH TWO TABLET S(100MG) TWICE A DAY)
     Route: 048
     Dates: start: 201101
  7. BENADRYL [Concomitant]
     Active Substance: DIPHENHYDRAMINE HYDROCHLORIDE
     Indication: DRUG HYPERSENSITIVITY
     Dosage: 25 MG, 2X/DAY
     Route: 048
     Dates: start: 201504, end: 201509
  8. VITAMIN C [Concomitant]
     Active Substance: ASCORBIC ACID
     Indication: BLOOD IRON
     Dosage: 500 MG, 1X/DAY
     Route: 048
     Dates: start: 201505
  9. PREDNISONE. [Concomitant]
     Active Substance: PREDNISONE
     Dosage: UNK
     Dates: start: 201509
  10. LETAIRIS [Suspect]
     Active Substance: AMBRISENTAN
     Dosage: 10 MG, DAILY
     Dates: start: 20130404
  11. LETAIRIS [Suspect]
     Active Substance: AMBRISENTAN
     Dosage: 5 MG, DAILY
     Dates: start: 20110209
  12. CELEBREX [Concomitant]
     Active Substance: CELECOXIB
     Indication: ARTHRALGIA
     Dosage: 100 MG, 1X/DAY
     Route: 048
     Dates: start: 2005
  13. ROPINIROLE. [Concomitant]
     Active Substance: ROPINIROLE
     Indication: RESTLESS LEGS SYNDROME
     Dosage: 0.25 MG, UNK (BEFORE BED)
     Route: 048
     Dates: start: 201505
  14. REMODULIN [Suspect]
     Active Substance: TREPROSTINIL
     Dosage: 92 NG, UNK, (PER HOUR)
     Route: 042
     Dates: start: 20140806
  15. LASIX [Concomitant]
     Active Substance: FUROSEMIDE
     Indication: LEFT VENTRICULAR FAILURE
     Dosage: 20 MG, 3X/DAY
     Route: 048
     Dates: end: 201206
  16. REMODULIN [Suspect]
     Active Substance: TREPROSTINIL
     Dosage: 0.022 ?G/KG, UNK
     Route: 058
     Dates: start: 201311
  17. IRON [Concomitant]
     Active Substance: IRON
     Indication: NEUROPATHY PERIPHERAL
     Dosage: 325 MG, 2X/DAY
     Route: 048
     Dates: start: 201205
  18. XARELTO [Concomitant]
     Active Substance: RIVAROXABAN
     Indication: RESTLESS LEGS SYNDROME
     Dosage: 10 MG, UNK (BEFORE BED)
     Route: 048
     Dates: start: 201504
  19. REVATIO [Suspect]
     Active Substance: SILDENAFIL CITRATE
     Dosage: UNK
  20. REMODULIN [Suspect]
     Active Substance: TREPROSTINIL
     Indication: PULMONARY HYPERTENSION
     Dosage: UNK(24/7 INFUSION)
     Route: 042
  21. POTASSIUM [Concomitant]
     Active Substance: POTASSIUM
     Indication: CARDIAC DISORDER
  22. OMEPRAZOLE. [Concomitant]
     Active Substance: OMEPRAZOLE
     Indication: GASTROOESOPHAGEAL REFLUX DISEASE
     Dosage: 40 MG, 2X/DAY
     Dates: start: 1998
  23. IRON [Concomitant]
     Active Substance: IRON
     Indication: RESTLESS LEGS SYNDROME
     Dosage: 325 MG, 2X/DAY
     Route: 048
     Dates: start: 201505
  24. ONDANSETRON [Concomitant]
     Active Substance: ONDANSETRON
     Dosage: UNK
     Dates: start: 201506
  25. DEMADEX [Concomitant]
     Active Substance: TORSEMIDE
     Indication: CARDIAC FAILURE
     Dosage: UNK
     Dates: start: 201206
  26. LETAIRIS [Suspect]
     Active Substance: AMBRISENTAN
     Indication: DRUG ABUSE
     Dosage: 10 MG, DAILY
     Dates: start: 20110208
  27. DOCUSATE SODIUM. [Concomitant]
     Active Substance: DOCUSATE SODIUM
     Indication: CONSTIPATION
     Dosage: 250 MG, 2X/DAY
     Route: 048
     Dates: start: 2011
  28. OMEPRAZOLE. [Concomitant]
     Active Substance: OMEPRAZOLE
     Indication: GASTRIC ULCER
  29. OMEPRAZOLE. [Concomitant]
     Active Substance: OMEPRAZOLE
     Indication: PYLORIC STENOSIS
  30. SIMVASTATIN. [Concomitant]
     Active Substance: SIMVASTATIN
     Indication: CARDIAC FAILURE
     Dosage: 10 MG, 1X/DAY  (BEFORE BED)
     Route: 048
     Dates: start: 201010
  31. REMODULIN [Suspect]
     Active Substance: TREPROSTINIL
     Dosage: 92 MG, UNK, (PER HOUR)
     Dates: start: 201311
  32. REMODULIN [Suspect]
     Active Substance: TREPROSTINIL
     Dosage: 0.022 UG/KG, UNK
     Route: 042
     Dates: start: 20140806
  33. LETAIRIS [Suspect]
     Active Substance: AMBRISENTAN
     Indication: PULMONARY HYPERTENSION
     Dosage: 10 MG, DAILY
     Dates: start: 201103
  34. AMITRIPTYLINE [Concomitant]
     Active Substance: AMITRIPTYLINE
     Indication: HEADACHE
     Dosage: 100 MG, DAILY, (2 TABLETS IN MORNING THREE TABLETS IN EVENING)
     Route: 048
     Dates: start: 201306
  35. XARELTO [Concomitant]
     Active Substance: RIVAROXABAN
     Indication: CARDIAC FAILURE
  36. DIGOXIN. [Concomitant]
     Active Substance: DIGOXIN
     Indication: CARDIAC FAILURE
     Dosage: 10 MG, 1X/DAY (ONCE IN THE EVENING)
     Route: 048
     Dates: start: 201010
  37. ZYRTEC [Concomitant]
     Active Substance: CETIRIZINE HYDROCHLORIDE
     Dosage: UNK
     Dates: start: 201502
  38. MELOXICAM. [Concomitant]
     Active Substance: MELOXICAM
     Dosage: UNK
     Dates: end: 201509

REACTIONS (28)
  - Hypotension [Unknown]
  - Wound [Not Recovered/Not Resolved]
  - Dyspnoea [Unknown]
  - Vomiting [Unknown]
  - Pyrexia [Unknown]
  - Device leakage [Unknown]
  - Sepsis [Unknown]
  - Blindness transient [Recovered/Resolved]
  - Pulmonary hypertension [Unknown]
  - Anaemia [Unknown]
  - Nodule [Unknown]
  - Product use issue [Unknown]
  - Renal failure [Not Recovered/Not Resolved]
  - Device dislocation [Unknown]
  - Catheter site scab [Unknown]
  - Skin exfoliation [Not Recovered/Not Resolved]
  - Device breakage [Unknown]
  - Drug dose omission [Unknown]
  - Diarrhoea [Unknown]
  - Pulmonary oedema [Not Recovered/Not Resolved]
  - Catheter site cellulitis [Not Recovered/Not Resolved]
  - Malaise [Recovering/Resolving]
  - Catheter site swelling [Not Recovered/Not Resolved]
  - Fatigue [Unknown]
  - Cough [Unknown]
  - Multi-organ failure [Unknown]
  - Dizziness [Unknown]
  - Laboratory test abnormal [Unknown]

NARRATIVE: CASE EVENT DATE: 2015
